FAERS Safety Report 20191362 (Version 1)
Quarter: 2021Q4

REPORT INFORMATION
  Report Type: Spontaneous
  Country: FR (occurrence: None)
  Receive Date: 20211216
  Receipt Date: 20211216
  Transmission Date: 20220303
  Serious: Yes (Other)
  Sender: FDA-Public Use
  Company Number: None

PATIENT
  Age: 51 Year

DRUGS (5)
  1. BUPRENORPHINE [Suspect]
     Active Substance: BUPRENORPHINE
  2. OXAZEPAM [Suspect]
     Active Substance: OXAZEPAM
  3. CLONAZEPAM [Suspect]
     Active Substance: CLONAZEPAM
  4. CANNABIS SATIVA SUBSP. INDICA TOP [Suspect]
     Active Substance: CANNABIS SATIVA SUBSP. INDICA TOP
  5. COCAINE [Suspect]
     Active Substance: COCAINE

REACTIONS (5)
  - Hypotension [Unknown]
  - Oxygen saturation decreased [Unknown]
  - Miosis [Unknown]
  - Poisoning [Unknown]
  - Altered state of consciousness [Unknown]

NARRATIVE: CASE EVENT DATE: 20210929
